FAERS Safety Report 9645598 (Version 2)
Quarter: 2013Q4

REPORT INFORMATION
  Report Type: Spontaneous
  Country: AR (occurrence: AR)
  Receive Date: 20131025
  Receipt Date: 20131029
  Transmission Date: 20140711
  Serious: Yes (Other)
  Sender: FDA-Public Use
  Company Number: AR-SA-2013SA106585

PATIENT
  Age: 55 Year
  Sex: Female
  Weight: 55 kg

DRUGS (2)
  1. CEREZYME [Suspect]
     Indication: GAUCHER^S DISEASE
     Dosage: 60 U/KG DOSE:60 UNIT(S)/KILOGRAM BODYWEIGHT
     Route: 042
     Dates: start: 2002
  2. CYPROHEPTADINE [Concomitant]
     Route: 048

REACTIONS (1)
  - Herpes ophthalmic [Not Recovered/Not Resolved]
